FAERS Safety Report 7077127-1 (Version None)
Quarter: 2010Q4

REPORT INFORMATION
  Report Type: 
  Country: None (occurrence: None)
  Receive Date: 20101101
  Receipt Date: 20101027
  Transmission Date: 20110411
  Serious: Yes (Other)
  Sender: FDA-Public Use
  Company Number: A0797147A

PATIENT
  Age: 57 Year
  Sex: Female
  Weight: 96.4 kg

DRUGS (8)
  1. AVANDIA [Suspect]
     Dosage: 2MG TWICE PER DAY
     Route: 048
     Dates: end: 20070601
  2. AVANDAMET [Suspect]
     Indication: DIABETES MELLITUS
     Route: 048
     Dates: end: 20060101
  3. ACTOS [Concomitant]
     Dates: start: 20070601
  4. METFORMIN [Concomitant]
  5. QUININE SULFATE [Concomitant]
  6. ALBUTEROL [Concomitant]
  7. PRILOSEC [Concomitant]
  8. PRAVACHOL [Concomitant]

REACTIONS (6)
  - CARDIAC DISORDER [None]
  - CARDIAC FAILURE CONGESTIVE [None]
  - EYE DISORDER [None]
  - HEART RATE IRREGULAR [None]
  - RETINITIS [None]
  - UVEITIS [None]
